FAERS Safety Report 4390083-X (Version None)
Quarter: 2004Q2

REPORT INFORMATION
  Report Type: 
  Country: None (occurrence: None)
  Receive Date: 20040630
  Receipt Date: 20040617
  Transmission Date: 20050107
  Serious: Yes (Hospitalization)
  Sender: FDA-Public Use
  Company Number: FR-JNJFOC-20040201060

PATIENT
  Age: 61 Year
  Sex: Female
  Weight: 98 kg

DRUGS (15)
  1. REMICADE [Suspect]
     Indication: ANKYLOSING SPONDYLITIS
     Dosage: SEE IMAGE
     Route: 042
     Dates: start: 20030521, end: 20030521
  2. REMICADE [Suspect]
     Indication: ANKYLOSING SPONDYLITIS
     Dosage: SEE IMAGE
     Route: 042
     Dates: start: 20030604, end: 20030604
  3. REMICADE [Suspect]
     Indication: ANKYLOSING SPONDYLITIS
     Dosage: SEE IMAGE
     Route: 042
     Dates: start: 20030702, end: 20030702
  4. REMICADE [Suspect]
     Indication: ANKYLOSING SPONDYLITIS
     Dosage: SEE IMAGE
     Route: 042
     Dates: start: 20030811, end: 20030811
  5. REMICADE [Suspect]
     Indication: ANKYLOSING SPONDYLITIS
     Dosage: SEE IMAGE
     Route: 042
     Dates: start: 20030925, end: 20030925
  6. REMICADE [Suspect]
     Indication: ANKYLOSING SPONDYLITIS
     Dosage: SEE IMAGE
     Route: 042
     Dates: start: 20031106, end: 20031106
  7. REMICADE [Suspect]
     Indication: ANKYLOSING SPONDYLITIS
     Dosage: SEE IMAGE
     Route: 042
     Dates: start: 20031217, end: 20031217
  8. PREDNISONE TAB [Concomitant]
  9. INEXIUM (ESOMEPRAZOLE) [Concomitant]
  10. KETOPROFEN [Concomitant]
  11. ACTISKENAN (MORPHINE SULFATE) [Concomitant]
  12. CODOLIPRANE (PANADEINE CO) [Concomitant]
  13. HEXAQUINE (HEXAQUINE) [Concomitant]
  14. DUSPATALIN (MEBEVERINE HYDROCHLORIDE) [Concomitant]
  15. POLY-KARAYA (POLY KARAYA) [Concomitant]

REACTIONS (5)
  - CHRONIC INFLAMMATORY DEMYELINATING POLYRADICULONEUROPATHY [None]
  - CSF PROTEIN INCREASED [None]
  - DIFFICULTY IN WALKING [None]
  - INTERMITTENT CLAUDICATION [None]
  - SPINAL COLUMN STENOSIS [None]
